FAERS Safety Report 17158161 (Version 5)
Quarter: 2021Q3

REPORT INFORMATION
  Report Type: Spontaneous
  Country: US (occurrence: US)
  Receive Date: 20191216
  Receipt Date: 20210928
  Transmission Date: 20211014
  Serious: Yes (Other)
  Sender: FDA-Public Use
  Company Number: US-GILEAD-2019-0442841

PATIENT
  Age: 53 Year
  Sex: Male

DRUGS (49)
  1. STRIBILD [Suspect]
     Active Substance: COBICISTAT\ELVITEGRAVIR\EMTRICITABINE\TENOFOVIR DISOPROXIL FUMARATE
     Indication: HIV INFECTION
     Dosage: 1 DOSAGE FORM (150?150?200?300 MG), QD
     Route: 048
     Dates: start: 20160127, end: 20160328
  2. ATRIPLA [Suspect]
     Active Substance: EFAVIRENZ\EMTRICITABINE\TENOFOVIR DISOPROXIL FUMARATE
     Indication: HIV INFECTION
     Dosage: UNK
     Route: 065
     Dates: start: 2008, end: 2009
  3. MIRTAZAPINE. [Concomitant]
     Active Substance: MIRTAZAPINE
  4. DRONABINOL. [Concomitant]
     Active Substance: DRONABINOL
  5. DIAZEPAM. [Concomitant]
     Active Substance: DIAZEPAM
  6. DOXAZOSIN [Concomitant]
     Active Substance: DOXAZOSIN MESYLATE
  7. TIOTROPIUM BROMIDE [Concomitant]
     Active Substance: TIOTROPIUM BROMIDE
  8. ASPIRIN EC [Concomitant]
     Active Substance: ASPIRIN
  9. POLYETHYLENE GLYCOL 3350. [Concomitant]
     Active Substance: POLYETHYLENE GLYCOL 3350
  10. OCEAN NASAL [Concomitant]
  11. DESCOVY [Suspect]
     Active Substance: EMTRICITABINE\TENOFOVIR ALAFENAMIDE FUMARATE
     Indication: HIV INFECTION
     Dosage: 1 DOSAGE FORM (200?25 MG), QD
     Route: 048
     Dates: start: 2016, end: 201701
  12. DESCOVY [Suspect]
     Active Substance: EMTRICITABINE\TENOFOVIR ALAFENAMIDE FUMARATE
     Dosage: 1 DOSAGE FORM (200?25 MG), QD
     Route: 048
     Dates: start: 201806, end: 201901
  13. EPCLUSA [Concomitant]
     Active Substance: SOFOSBUVIR\VELPATASVIR
     Indication: CHRONIC HEPATITIS C
     Dosage: 1 DOSAGE FORM (400?100 MG), QD
     Dates: start: 20180418
  14. NICOTINE. [Concomitant]
     Active Substance: NICOTINE
  15. AMMONIUM LACTATE. [Concomitant]
     Active Substance: AMMONIUM LACTATE
  16. VENTOLIN HFA [Concomitant]
     Active Substance: ALBUTEROL SULFATE
  17. DESIPRAMINE [Concomitant]
     Active Substance: DESIPRAMINE
  18. VIREAD [Suspect]
     Active Substance: TENOFOVIR DISOPROXIL FUMARATE
     Indication: HIV INFECTION
     Route: 065
  19. TIVICAY [Concomitant]
     Active Substance: DOLUTEGRAVIR SODIUM
     Indication: HIV INFECTION
  20. AMOXICILLIN + CLAV. POTASSIUM [Concomitant]
     Active Substance: AMOXICILLIN\CLAVULANATE POTASSIUM
  21. FENTANYL. [Concomitant]
     Active Substance: FENTANYL
  22. TRUVADA [Suspect]
     Active Substance: EMTRICITABINE\TENOFOVIR DISOPROXIL FUMARATE
     Dosage: 1 DOSAGE FORM (200?300 MG), QD
     Route: 048
     Dates: start: 201701, end: 20180628
  23. ATORVASTATIN [Concomitant]
     Active Substance: ATORVASTATIN
  24. PROVENTIL HFA [Concomitant]
     Active Substance: ALBUTEROL SULFATE
  25. MORPHINE SULFATE. [Concomitant]
     Active Substance: MORPHINE SULFATE
  26. PRAZOSIN. [Concomitant]
     Active Substance: PRAZOSIN
  27. BENZOYL PEROXIDE. [Concomitant]
     Active Substance: BENZOYL PEROXIDE
  28. CITALOPRAM [Concomitant]
     Active Substance: CITALOPRAM HYDROBROMIDE
  29. AMITRIPTYLINE [Concomitant]
     Active Substance: AMITRIPTYLINE
  30. FINASTERIDE. [Concomitant]
     Active Substance: FINASTERIDE
  31. OXYCODONE AND ACETAMINOPHEN [Concomitant]
     Active Substance: ACETAMINOPHEN\OXYCODONE HYDROCHLORIDE
  32. TRUVADA [Suspect]
     Active Substance: EMTRICITABINE\TENOFOVIR DISOPROXIL FUMARATE
     Indication: HIV INFECTION
     Dosage: 1 DOSAGE FORM (200?300 MG), QD
     Route: 048
     Dates: start: 20160323, end: 2016
  33. SYMTUZA [Concomitant]
     Active Substance: COBICISTAT\DARUNAVIR\EMTRICITABINE\TENOFOVIR ALAFENAMIDE
  34. CYCLOBENZAPRINE. [Concomitant]
     Active Substance: CYCLOBENZAPRINE
  35. OXYCODONE [Concomitant]
     Active Substance: OXYCODONE
  36. IBUPROFEN. [Concomitant]
     Active Substance: IBUPROFEN
  37. METHYLPREDNISOLONE. [Concomitant]
     Active Substance: METHYLPREDNISOLONE
  38. PREZCOBIX [Concomitant]
     Active Substance: COBICISTAT\DARUNAVIR ETHANOLATE
     Indication: HIV INFECTION
  39. LACTULOSE. [Concomitant]
     Active Substance: LACTULOSE
  40. SENNA [SENNOSIDE A+B] [Concomitant]
     Active Substance: SENNOSIDES A AND B
  41. IPRATROPIUM BROMIDE AND ALBUTEROL SULFATE [Concomitant]
     Active Substance: ALBUTEROL SULFATE\IPRATROPIUM BROMIDE
  42. FLUCONAZOLE. [Concomitant]
     Active Substance: FLUCONAZOLE
  43. PANTOPRAZOLE [Concomitant]
     Active Substance: PANTOPRAZOLE
  44. FLUTICASONE PROPIONATE. [Concomitant]
     Active Substance: FLUTICASONE PROPIONATE
  45. DICYCLOMINE HCL [Concomitant]
     Active Substance: DICYCLOMINE HYDROCHLORIDE
  46. KETOCONAZOLE. [Concomitant]
     Active Substance: KETOCONAZOLE
  47. OMEPRAZOLE. [Concomitant]
     Active Substance: OMEPRAZOLE
  48. BECLOMETHASONE [BECLOMETASONE] [Concomitant]
     Active Substance: BECLOMETHASONE
  49. SALICYLIC ACID. [Concomitant]
     Active Substance: SALICYLIC ACID

REACTIONS (13)
  - Anxiety [Unknown]
  - Anhedonia [Unknown]
  - Renal failure [Unknown]
  - Pain [Unknown]
  - Emotional distress [Unknown]
  - Cognitive disorder [Unknown]
  - Economic problem [Unknown]
  - Osteoarthritis [Not Recovered/Not Resolved]
  - Gastrointestinal disorder [Unknown]
  - Bone density decreased [Unknown]
  - Chronic kidney disease [Not Recovered/Not Resolved]
  - Hallucination [Unknown]
  - Osteopenia [Not Recovered/Not Resolved]

NARRATIVE: CASE EVENT DATE: 2016
